FAERS Safety Report 19882269 (Version 2)
Quarter: 2023Q2

REPORT INFORMATION
  Report Type: Report from Study
  Country: US (occurrence: US)
  Receive Date: 20210924
  Receipt Date: 20230614
  Transmission Date: 20230721
  Serious: Yes (Hospitalization, Other)
  Sender: FDA-Public Use
  Company Number: US-TAKEDA-US202003992

PATIENT
  Age: 71 Year
  Sex: Female
  Weight: 49 kg

DRUGS (21)
  1. TEDUGLUTIDE [Suspect]
     Active Substance: TEDUGLUTIDE
     Indication: Short-bowel syndrome
     Dosage: 2.4 MILLIGRAM, 1/WEEK
     Route: 042
     Dates: start: 201709, end: 20190430
  2. TEDUGLUTIDE [Suspect]
     Active Substance: TEDUGLUTIDE
     Indication: Short-bowel syndrome
     Dosage: 2.4 MILLIGRAM, 1/WEEK
     Route: 042
     Dates: start: 201709, end: 20190430
  3. TEDUGLUTIDE [Suspect]
     Active Substance: TEDUGLUTIDE
     Indication: Short-bowel syndrome
     Dosage: 2.4 MILLIGRAM, 1/WEEK
     Route: 042
     Dates: start: 201709, end: 20190430
  4. TEDUGLUTIDE [Suspect]
     Active Substance: TEDUGLUTIDE
     Indication: Short-bowel syndrome
     Dosage: 2.4 MILLIGRAM, 1/WEEK
     Route: 042
     Dates: start: 201709, end: 20190430
  5. TEDUGLUTIDE [Suspect]
     Active Substance: TEDUGLUTIDE
     Dosage: 2.5 MILLIGRAM, 1/WEEK
     Route: 042
     Dates: start: 20190430, end: 202011
  6. TEDUGLUTIDE [Suspect]
     Active Substance: TEDUGLUTIDE
     Dosage: 2.5 MILLIGRAM, 1/WEEK
     Route: 042
     Dates: start: 20190430, end: 202011
  7. TEDUGLUTIDE [Suspect]
     Active Substance: TEDUGLUTIDE
     Dosage: 2.5 MILLIGRAM, 1/WEEK
     Route: 042
     Dates: start: 20190430, end: 202011
  8. TEDUGLUTIDE [Suspect]
     Active Substance: TEDUGLUTIDE
     Dosage: 2.5 MILLIGRAM, 1/WEEK
     Route: 042
     Dates: start: 20190430, end: 202011
  9. TEDUGLUTIDE [Suspect]
     Active Substance: TEDUGLUTIDE
     Dosage: 2.5 MILLIGRAM, 4/WEEK
     Route: 042
     Dates: start: 202011, end: 202012
  10. TEDUGLUTIDE [Suspect]
     Active Substance: TEDUGLUTIDE
     Dosage: 2.5 MILLIGRAM, 4/WEEK
     Route: 042
     Dates: start: 202011, end: 202012
  11. TEDUGLUTIDE [Suspect]
     Active Substance: TEDUGLUTIDE
     Dosage: 2.5 MILLIGRAM, 4/WEEK
     Route: 042
     Dates: start: 202011, end: 202012
  12. TEDUGLUTIDE [Suspect]
     Active Substance: TEDUGLUTIDE
     Dosage: 2.5 MILLIGRAM, 4/WEEK
     Route: 042
     Dates: start: 202011, end: 202012
  13. TEDUGLUTIDE [Suspect]
     Active Substance: TEDUGLUTIDE
     Dosage: 2.0 MILLIGRAM, QD
     Route: 042
     Dates: start: 202012
  14. TEDUGLUTIDE [Suspect]
     Active Substance: TEDUGLUTIDE
     Dosage: 2.0 MILLIGRAM, QD
     Route: 042
     Dates: start: 202012
  15. TEDUGLUTIDE [Suspect]
     Active Substance: TEDUGLUTIDE
     Dosage: 2.0 MILLIGRAM, QD
     Route: 042
     Dates: start: 202012
  16. TEDUGLUTIDE [Suspect]
     Active Substance: TEDUGLUTIDE
     Dosage: 2.0 MILLIGRAM, QD
     Route: 042
     Dates: start: 202012
  17. URSODIOL [Concomitant]
     Active Substance: URSODIOL
     Indication: Cholestasis
     Dosage: 1 DOSAGE FORM, BID
     Route: 048
     Dates: start: 20200423, end: 20200722
  18. GOLYTELY [Concomitant]
     Active Substance: POLYETHYLENE GLYCOL 3350\POTASSIUM CHLORIDE\SODIUM BICARBONATE\SODIUM CHLORIDE\SODIUM SULFATE
     Indication: Constipation
     Route: 065
  19. ONDANSETRON [Concomitant]
     Active Substance: ONDANSETRON
     Indication: Prophylaxis of nausea and vomiting
     Route: 065
  20. MORPHINE SULFATE [Concomitant]
     Active Substance: MORPHINE SULFATE
     Indication: Procedural pain
     Dosage: 1 DOSAGE FORM, PRN
     Route: 048
     Dates: start: 2018, end: 2019
  21. CYANOCOBALAMIN [Concomitant]
     Active Substance: CYANOCOBALAMIN
     Indication: Vitamin B12 deficiency
     Dosage: 1 MILLIGRAM, MONTHLY
     Route: 030
     Dates: start: 2019

REACTIONS (1)
  - Rectal prolapse [Recovered/Resolved]

NARRATIVE: CASE EVENT DATE: 20191001
